FAERS Safety Report 9495313 (Version 1)
Quarter: 2013Q3

REPORT INFORMATION
  Report Type: Spontaneous
  Country: None (occurrence: GB)
  Receive Date: 20130903
  Receipt Date: 20130903
  Transmission Date: 20140515
  Serious: Yes (Hospitalization)
  Sender: FDA-Public Use
  Company Number: GB-BAUSCH-BL-2013-004803

PATIENT
  Age: 76 Year
  Sex: Female
  Weight: 71.3 kg

DRUGS (14)
  1. DEXAMETHASONE [Suspect]
     Indication: PLASMA CELL MYELOMA
     Dosage: 1 /1 DAYS
     Route: 048
     Dates: start: 20120726, end: 20121118
  2. ELOTUZUMAB [Suspect]
     Indication: PLASMA CELL MYELOMA
     Dosage: 1 /1DAYS
     Route: 041
     Dates: start: 20120726, end: 20121017
  3. REVLIMID [Suspect]
     Indication: PLASMA CELL MYELOMA
     Dosage: 1 /1DAYS
     Route: 048
     Dates: start: 20120726, end: 20121107
  4. ACETYLSALICYLIC ACID [Concomitant]
     Indication: PRODUCT USED FOR UNKNOWN INDICATION
  5. ATORVASTATIN [Concomitant]
     Indication: PRODUCT USED FOR UNKNOWN INDICATION
  6. BISOPROLOL [Concomitant]
     Indication: PRODUCT USED FOR UNKNOWN INDICATION
  7. DIGOXIN [Concomitant]
     Indication: PRODUCT USED FOR UNKNOWN INDICATION
  8. FERROUS FUMARATE [Concomitant]
     Indication: PRODUCT USED FOR UNKNOWN INDICATION
  9. FOLIC ACID [Concomitant]
     Indication: PRODUCT USED FOR UNKNOWN INDICATION
  10. FUROSEMIDE [Concomitant]
     Indication: PRODUCT USED FOR UNKNOWN INDICATION
     Dates: start: 20120829, end: 20120902
  11. ERGOCALCIFEROL/ASCORBIC ACID/PYRIDOXINE HYDROCHLORIDE/THIAMINE HYDROCHLORIDE/RETINOL/RIBOFLAVIN/NICO [Concomitant]
     Indication: PRODUCT USED FOR UNKNOWN INDICATION
  12. OMEPRAZOLE [Concomitant]
     Indication: PRODUCT USED FOR UNKNOWN INDICATION
  13. BENZYLPENICILLIN [Concomitant]
     Indication: PRODUCT USED FOR UNKNOWN INDICATION
  14. CLODRONATE DISODIUM [Concomitant]
     Indication: PRODUCT USED FOR UNKNOWN INDICATION

REACTIONS (2)
  - Confusional state [Recovered/Resolved]
  - Confusional state [Recovered/Resolved]
